FAERS Safety Report 12976901 (Version 2)
Quarter: 2016Q4

REPORT INFORMATION
  Report Type: Spontaneous
  Country: US (occurrence: US)
  Receive Date: 20161128
  Receipt Date: 20161207
  Transmission Date: 20170207
  Serious: Yes (Other)
  Sender: FDA-Public Use
  Company Number: PHEH2016US030679

PATIENT
  Sex: Male
  Weight: 63 kg

DRUGS (1)
  1. GILENYA [Suspect]
     Active Substance: FINGOLIMOD HYDROCHLORIDE
     Indication: PRODUCT USED FOR UNKNOWN INDICATION
     Dosage: 0.5 MG, QD
     Route: 048
     Dates: start: 2012, end: 2013

REACTIONS (8)
  - Multiple sclerosis relapse [Unknown]
  - Lymphopenia [Unknown]
  - Erectile dysfunction [Unknown]
  - Urine flow decreased [Unknown]
  - Basophil count decreased [Unknown]
  - Sensory disturbance [Unknown]
  - Muscle twitching [Unknown]
  - Blood bilirubin increased [Unknown]
